FAERS Safety Report 18877430 (Version 3)
Quarter: 2021Q1

REPORT INFORMATION
  Report Type: Spontaneous
  Country: US (occurrence: US)
  Receive Date: 20210211
  Receipt Date: 20210218
  Transmission Date: 20210420
  Serious: No
  Sender: FDA-Public Use
  Company Number: US-PFIZER INC-2021105092

PATIENT
  Age: 71 Year
  Sex: Female

DRUGS (3)
  1. SOMAVERT [Suspect]
     Active Substance: PEGVISOMANT
     Indication: GIGANTISM
  2. SOMAVERT [Suspect]
     Active Substance: PEGVISOMANT
     Indication: ACROMEGALY
     Dosage: 40 MG, WEEKLY (40 MG SQ (SUBCUTANEOUS) Q (PER) 7 DAYS)
     Route: 058
     Dates: start: 20180615
  3. SOMATULINE [LANREOTIDE ACETATE] [Suspect]
     Active Substance: LANREOTIDE ACETATE
     Dosage: UNK (60MG/0.2ML SYRINGE)

REACTIONS (3)
  - Device breakage [Unknown]
  - Off label use [Unknown]
  - Device physical property issue [Unknown]
